FAERS Safety Report 7038852-1 (Version None)
Quarter: 2010Q4

REPORT INFORMATION
  Report Type: 
  Country: None (occurrence: None)
  Receive Date: 20101012
  Receipt Date: 20101004
  Transmission Date: 20110411
  Serious: No
  Sender: FDA-Public Use
  Company Number: 2009BI015936

PATIENT
  Sex: Female

DRUGS (1)
  1. TYSABRI [Suspect]
     Indication: MULTIPLE SCLEROSIS
     Route: 042
     Dates: start: 20080429

REACTIONS (6)
  - DEVICE OCCLUSION [None]
  - FEELING HOT [None]
  - HEADACHE [None]
  - NERVOUSNESS [None]
  - TREMOR [None]
  - VASOCONSTRICTION [None]
